FAERS Safety Report 15185935 (Version 2)
Quarter: 2019Q1

REPORT INFORMATION
  Report Type: Report from Study
  Country: US (occurrence: US)
  Receive Date: 20180723
  Receipt Date: 20190130
  Transmission Date: 20190417
  Serious: No
  Sender: FDA-Public Use
  Company Number: US-EXELIXIS-CABO-18014230

PATIENT
  Age: 68 Year
  Sex: Female

DRUGS (2)
  1. CABOMETYX [Suspect]
     Active Substance: CABOZANTINIB S-MALATE
     Indication: OVARIAN CANCER
     Dosage: 40 MG, MONDAY-FRIDAY AND OFF ON WEEKENDS
     Route: 048
     Dates: start: 20180430, end: 2018
  2. CABOMETYX [Suspect]
     Active Substance: CABOZANTINIB S-MALATE
     Dosage: 20 MG, UNK
     Route: 048
     Dates: start: 2018, end: 2018

REACTIONS (12)
  - Fatigue [Recovered/Resolved]
  - Dysgeusia [Unknown]
  - Stomatitis [Recovered/Resolved]
  - Off label use [Unknown]
  - Tongue discomfort [Unknown]
  - Diarrhoea [Recovering/Resolving]
  - Hyperhidrosis [Unknown]
  - Dizziness [Unknown]
  - Asthenia [Unknown]
  - Respiratory tract infection [Unknown]
  - Treatment failure [Unknown]
  - Acne [Unknown]

NARRATIVE: CASE EVENT DATE: 2018
